FAERS Safety Report 25627744 (Version 8)
Quarter: 2025Q4

REPORT INFORMATION
  Report Type: Spontaneous
  Country: US (occurrence: US)
  Receive Date: 20250731
  Receipt Date: 20251208
  Transmission Date: 20260118
  Serious: No
  Sender: PFIZER
  Company Number: US-PFIZER INC-202500152415

PATIENT
  Age: 16 Year
  Sex: Male
  Weight: 85.4 kg

DRUGS (1)
  1. GENOTROPIN [Suspect]
     Active Substance: SOMATROPIN
     Indication: Short stature
     Dosage: 0.7 MG, DAILY
     Route: 058
     Dates: start: 202502

REACTIONS (5)
  - Drug dose omission by device [Unknown]
  - Device breakage [Unknown]
  - Wrong technique in device usage process [Unknown]
  - Device leakage [Unknown]
  - Product communication issue [Unknown]

NARRATIVE: CASE EVENT DATE: 20250701
